FAERS Safety Report 14603962 (Version 1)
Quarter: 2018Q1

REPORT INFORMATION
  Report Type: Spontaneous
  Country: FR (occurrence: FR)
  Receive Date: 20180306
  Receipt Date: 20180306
  Transmission Date: 20180509
  Serious: Yes (Other)
  Sender: FDA-Public Use
  Company Number: FR-CONCORDIA PHARMACEUTICALS INC.-E2B_00010444

PATIENT
  Age: 50 Year
  Sex: Male

DRUGS (3)
  1. METRONIDAZOLE. [Concomitant]
     Active Substance: METRONIDAZOLE
     Indication: ANTIBIOTIC THERAPY
     Route: 065
  2. SPIRAMYCIN [Concomitant]
     Active Substance: SPIRAMYCIN
     Indication: ANTIBIOTIC THERAPY
     Route: 065
  3. PREDNISOLONE. [Suspect]
     Active Substance: PREDNISOLONE
     Indication: STEROID THERAPY
     Dosage: 60 MILLIGRAM DAILY;
     Route: 048

REACTIONS (1)
  - Osteomyelitis bacterial [Recovered/Resolved]
